FAERS Safety Report 9814875 (Version 2)
Quarter: 2014Q1

REPORT INFORMATION
  Report Type: Report from Study
  Country: US (occurrence: US)
  Receive Date: 20140113
  Receipt Date: 20140113
  Transmission Date: 20141002
  Serious: Yes (Hospitalization)
  Sender: FDA-Public Use
  Company Number: US-ABBVIE-13P-163-1174549-00

PATIENT
  Age: 32 Year
  Sex: Female
  Weight: 44.8 kg

DRUGS (2)
  1. HUMIRA [Suspect]
     Indication: CROHN^S DISEASE
     Dates: start: 20131001
  2. HUMIRA [Suspect]

REACTIONS (1)
  - Anaemia [Unknown]
